FAERS Safety Report 11418472 (Version 1)
Quarter: 2015Q3

REPORT INFORMATION
  Report Type: Spontaneous
  Country: US (occurrence: US)
  Receive Date: 20150826
  Receipt Date: 20150826
  Transmission Date: 20151125
  Serious: No
  Sender: FDA-Public Use
  Company Number: US-NOVEN PHARMACEUTICALS, INC.-US2015000516

PATIENT
  Age: 47 Year
  Sex: Female

DRUGS (6)
  1. ACEFLEX PLUS [Concomitant]
     Indication: GASTROOESOPHAGEAL REFLUX DISEASE
  2. VITAMIN D [Concomitant]
     Active Substance: CHOLECALCIFEROL
  3. MINIVELLE [Suspect]
     Active Substance: ESTRADIOL
     Indication: HOT FLUSH
     Dosage: 0.1 MG, UNKNOWN
     Route: 062
     Dates: start: 20150112
  4. CALCIUM [Concomitant]
     Active Substance: CALCIUM
  5. MULTIVITAMINS [Concomitant]
     Active Substance: VITAMINS
  6. MINIVELLE [Suspect]
     Active Substance: ESTRADIOL
     Indication: NIGHT SWEATS

REACTIONS (3)
  - No adverse event [Unknown]
  - Drug dose omission [Unknown]
  - Product adhesion issue [Unknown]

NARRATIVE: CASE EVENT DATE: 2015
